FAERS Safety Report 6208689-1 (Version None)
Quarter: 2009Q2

REPORT INFORMATION
  Report Type: 
  Country: None (occurrence: None)
  Receive Date: 20090522
  Receipt Date: 20090421
  Transmission Date: 20091009
  Serious: No
  Sender: FDA-Public Use
  Company Number: 8044023

PATIENT
  Age: 30 Year
  Sex: Female
  Weight: 58.9 kg

DRUGS (2)
  1. CIMZIA [Suspect]
     Indication: CROHN'S DISEASE
     Dosage: 400 MG SC
     Route: 058
     Dates: start: 20090227
  2. CIMZIA [Suspect]
     Indication: CROHN'S DISEASE
     Dosage: 400 MG SC
     Route: 058

REACTIONS (5)
  - COUGH [None]
  - FUNGAL INFECTION [None]
  - HOT FLUSH [None]
  - NASOPHARYNGITIS [None]
  - RASH [None]
